FAERS Safety Report 18929579 (Version 5)
Quarter: 2021Q2

REPORT INFORMATION
  Report Type: Report from Study
  Country: CA (occurrence: CA)
  Receive Date: 20210223
  Receipt Date: 20210420
  Transmission Date: 20210717
  Serious: Yes (Death, Hospitalization, Other)
  Sender: FDA-Public Use
  Company Number: CA-OTSUKA-2021_001990

PATIENT
  Age: 72 Year
  Sex: Female

DRUGS (3)
  1. ASTX727 [Suspect]
     Active Substance: CEDAZURIDINE\DECITABINE
     Dosage: 135 MG (35 MG DECITABINE AND 100 MG CEDAZURIDINE), QD (ON DAYS 1, 3 AND 5) FOR CURRENT CYCLE
     Route: 065
  2. ASTX727 [Suspect]
     Active Substance: CEDAZURIDINE\DECITABINE
     Indication: MYELODYSPLASTIC SYNDROME
     Dosage: 135MG (35 MG DECITABINE AND 100 MG CEDAZURIDINE), QD 1?5 DAYS EVERY 28 DAY CYCLE (CYCLE 4)
     Route: 048
     Dates: start: 20201207
  3. ASTX727 [Suspect]
     Active Substance: CEDAZURIDINE\DECITABINE
     Dosage: 135MG (35 MG DECITABINE AND 100 MG CEDAZURIDINE), QD 1?5 DAYS EVERY 28 DAY CYCLE (CYCLE 1)
     Route: 048

REACTIONS (9)
  - Therapy interrupted [Unknown]
  - Product use issue [Unknown]
  - General physical health deterioration [Not Recovered/Not Resolved]
  - Death [Fatal]
  - Platelet transfusion [Unknown]
  - Febrile neutropenia [Not Recovered/Not Resolved]
  - Rectal fissure [Unknown]
  - Transfusion [Unknown]
  - Pneumonia [Not Recovered/Not Resolved]

NARRATIVE: CASE EVENT DATE: 202104
